FAERS Safety Report 11797502 (Version 1)
Quarter: 2015Q4

REPORT INFORMATION
  Report Type: Spontaneous
  Country: US (occurrence: None)
  Receive Date: 20151202
  Receipt Date: 20151202
  Transmission Date: 20160305
  Serious: Yes (Life-Threatening, Hospitalization, Disabling, Other)
  Sender: FDA-Public Use
  Company Number: None

PATIENT
  Age: 64 Year
  Sex: Female
  Weight: 76.2 kg

DRUGS (10)
  1. LANTUS [Concomitant]
     Active Substance: INSULIN GLARGINE
  2. VICTOZA [Suspect]
     Active Substance: LIRAGLUTIDE
     Indication: TYPE 2 DIABETES MELLITUS
  3. TIZANIDINE. [Concomitant]
     Active Substance: TIZANIDINE
  4. DIOVON [Concomitant]
  5. ZOLOFT [Concomitant]
     Active Substance: SERTRALINE HYDROCHLORIDE
  6. ZOLPIDEM [Concomitant]
     Active Substance: ZOLPIDEM\ZOLPIDEM TARTRATE
  7. TRAMADOL. [Concomitant]
     Active Substance: TRAMADOL
  8. HUMALOG [Concomitant]
     Active Substance: INSULIN LISPRO
  9. TOPSOIL [Concomitant]
  10. XANAX [Concomitant]
     Active Substance: ALPRAZOLAM

REACTIONS (8)
  - Pleural effusion [None]
  - Renal failure [None]
  - Cholecystitis [None]
  - Fall [None]
  - Hyporesponsive to stimuli [None]
  - Organ failure [None]
  - Pancreatitis acute [None]
  - Hepatic failure [None]

NARRATIVE: CASE EVENT DATE: 20150901
